FAERS Safety Report 4574456-8 (Version None)
Quarter: 2005Q1

REPORT INFORMATION
  Report Type: 
  Country: None (occurrence: None)
  Receive Date: 20050204
  Receipt Date: 20050124
  Transmission Date: 20050727
  Serious: Yes (Hospitalization)
  Sender: FDA-Public Use
  Company Number: 2005017680

PATIENT
  Age: 90 Year
  Sex: Male
  Weight: 78.0187 kg

DRUGS (1)
  1. DETROL LA [Suspect]
     Indication: HYPERTONIC BLADDER
     Dosage: 4MG (4 MG, DAILY), ORAL
     Route: 048
     Dates: end: 20030101

REACTIONS (2)
  - DIVERTICULITIS [None]
  - DRUG INEFFECTIVE [None]
